FAERS Safety Report 23881216 (Version 2)
Quarter: 2024Q3

REPORT INFORMATION
  Report Type: Report from Study
  Country: US (occurrence: US)
  Receive Date: 20240521
  Receipt Date: 20240703
  Transmission Date: 20241017
  Serious: Yes (Hospitalization, Other)
  Sender: RANBAXY
  Company Number: US-SUN PHARMACEUTICAL INDUSTRIES LTD-2024R1-446864

PATIENT
  Age: 79 Year
  Sex: Male
  Weight: 72.608 kg

DRUGS (14)
  1. LEUPROLIDE [Suspect]
     Active Substance: LEUPROLIDE
     Indication: Prostate cancer
     Dosage: UNK (22.5 MG EVERY 3 MONTHS (12W))
     Route: 058
     Dates: start: 2015, end: 20230416
  2. ENZALUTAMIDE [Suspect]
     Active Substance: ENZALUTAMIDE
     Indication: Prostate cancer
     Dosage: 160 MILLIGRAM, DAILY
     Route: 048
     Dates: start: 2015, end: 20230416
  3. ELAVIL [Concomitant]
     Active Substance: AMITRIPTYLINE HYDROCHLORIDE
     Indication: Nausea
     Dosage: UNK
     Route: 048
     Dates: start: 20230216
  4. ASPIRIN [Concomitant]
     Active Substance: ASPIRIN
     Indication: Routine health maintenance
     Dosage: UNK
     Route: 048
     Dates: start: 20110707
  5. ATORVASTATIN [Concomitant]
     Active Substance: ATORVASTATIN
     Indication: Hyperlipidaemia
     Dosage: UNK
     Route: 048
     Dates: start: 20230113
  6. ALIGN [Concomitant]
     Active Substance: BIFIDOBACTERIUM LONGUM SUBSP. INFANTIS
     Indication: Supplementation therapy
     Dosage: UNK
     Route: 048
     Dates: start: 20211115
  7. ARICEPT [Concomitant]
     Active Substance: DONEPEZIL HYDROCHLORIDE
     Indication: Routine health maintenance
     Dosage: UNK
     Route: 048
     Dates: start: 20230113
  8. FOLIC ACID [Concomitant]
     Active Substance: FOLIC ACID
     Indication: Routine health maintenance
     Dosage: UNK
     Route: 048
     Dates: start: 20230312
  9. LEVOTHYROXINE [Concomitant]
     Active Substance: LEVOTHYROXINE\LEVOTHYROXINE SODIUM
     Indication: Thyroid disorder
     Dosage: UNK
     Route: 048
     Dates: start: 20230113
  10. VITAMINS [Concomitant]
     Active Substance: VITAMINS
     Indication: Nutritional supplementation
     Dosage: UNK (ONE TABLET DAILY)
     Route: 048
     Dates: start: 20230227
  11. NYSTATIN [Concomitant]
     Active Substance: NYSTATIN
     Indication: Fungal infection
     Dosage: UNK
     Route: 061
     Dates: start: 20190925
  12. ZOFRAN [Concomitant]
     Active Substance: ONDANSETRON HYDROCHLORIDE
     Indication: Nausea
     Dosage: UNK
     Route: 048
     Dates: start: 20230320
  13. PSYLLIUM [Concomitant]
     Active Substance: PLANTAGO SEED
     Indication: Routine health maintenance
     Dosage: UNK
     Route: 048
     Dates: start: 20221006
  14. SENNA [Concomitant]
     Active Substance: SENNA LEAF\SENNOSIDES\SENNOSIDES A AND B
     Indication: Constipation
     Dosage: UNK
     Route: 048
     Dates: start: 20221014

REACTIONS (3)
  - Encephalopathy [Recovered/Resolved]
  - Hyponatraemia [Recovered/Resolved]
  - Hypomagnesaemia [Recovered/Resolved]
